FAERS Safety Report 4280917-1 (Version None)
Quarter: 2004Q1

REPORT INFORMATION
  Report Type: 
  Country: None (occurrence: None)
  Receive Date: 20040129
  Receipt Date: 20040116
  Transmission Date: 20041129
  Serious: Yes (Other)
  Sender: FDA-Public Use
  Company Number: FR-GLAXOSMITHKLINE-B0320090A

PATIENT
  Age: 43 Year
  Sex: Male

DRUGS (2)
  1. DEROXAT [Suspect]
     Indication: DEPRESSION
     Route: 048
     Dates: start: 20030901
  2. RIVOTRIL [Concomitant]
     Route: 048

REACTIONS (2)
  - INTENTIONAL MISUSE [None]
  - INTENTIONAL OVERDOSE [None]
